FAERS Safety Report 4982590-3 (Version None)
Quarter: 2006Q2

REPORT INFORMATION
  Report Type: 
  Country: None (occurrence: None)
  Receive Date: 20060425
  Receipt Date: 20060201
  Transmission Date: 20061013
  Serious: Yes (Other)
  Sender: FDA-Public Use
  Company Number: GB-BOEHRINGER INGELHEIM PHARMACEUTICALS, INC.-2006-UK-00388UK

PATIENT
  Age: 71 Year
  Sex: Male

DRUGS (8)
  1. SPIRIVA [Suspect]
     Indication: CHRONIC OBSTRUCTIVE PULMONARY DISEASE
     Dates: start: 20060101
  2. ADALAT CC [Concomitant]
  3. ASPIRIN [Concomitant]
  4. DOXAZOCIN [Concomitant]
  5. METFORMIN [Concomitant]
  6. PRAVASTATIN [Concomitant]
  7. SALBUTAMOL [Concomitant]
     Dosage: NOT REPORTED
  8. VERAPAMIL [Concomitant]

REACTIONS (2)
  - LOSS OF CONSCIOUSNESS [None]
  - ROAD TRAFFIC ACCIDENT [None]
